FAERS Safety Report 4480026-2 (Version None)
Quarter: 2004Q4

REPORT INFORMATION
  Report Type: 
  Country: None (occurrence: None)
  Receive Date: 20041018
  Receipt Date: 20040930
  Transmission Date: 20050328
  Serious: Yes (Death)
  Sender: FDA-Public Use
  Company Number: DSA_25087_2004

PATIENT
  Age: 35 Year

DRUGS (1)
  1. DILTIAZEM HCL [Suspect]
     Dosage: DF PA
     Route: 051

REACTIONS (2)
  - ADVERSE EVENT [None]
  - OVERDOSE [None]
